FAERS Safety Report 25211410 (Version 1)
Quarter: 2025Q2

REPORT INFORMATION
  Report Type: Spontaneous
  Country: JP (occurrence: JP)
  Receive Date: 20250417
  Receipt Date: 20250417
  Transmission Date: 20250717
  Serious: Yes (Hospitalization)
  Sender: MERCK SHARP & DOHME LLC
  Company Number: JP-009507513-2275603

PATIENT
  Sex: Female

DRUGS (2)
  1. KEYTRUDA [Suspect]
     Active Substance: PEMBROLIZUMAB
     Indication: Uterine cancer
     Dosage: 200MG ONCE EVERY 3 WEEKS, 1 CYCLE
     Route: 041
     Dates: start: 202503, end: 202503
  2. LENVIMA [Concomitant]
     Active Substance: LENVATINIB
     Indication: Uterine cancer
     Dosage: 20MG ONCE EVERY DAY, 1 CYCLE
     Route: 048
     Dates: start: 202503, end: 202503

REACTIONS (2)
  - Immune-mediated dermatitis [Recovered/Resolved]
  - Mucosal inflammation [Recovered/Resolved]

NARRATIVE: CASE EVENT DATE: 20250301
